FAERS Safety Report 18208400 (Version 1)
Quarter: 2020Q3

REPORT INFORMATION
  Report Type: Other
  Country: US (occurrence: US)
  Receive Date: 20200828
  Receipt Date: 20200828
  Transmission Date: 20201103
  Serious: Yes (Other)
  Sender: FDA-Public Use
  Company Number: US-ROCHE-2665069

PATIENT
  Sex: Male

DRUGS (2)
  1. NUTROPIN [Suspect]
     Active Substance: SOMATROPIN
  2. NUTROPIN [Suspect]
     Active Substance: SOMATROPIN
     Indication: SHORT STATURE
     Dosage: NUSPIN 10 MG PEN, 0.7MG DAILY.
     Route: 058

REACTIONS (5)
  - Mental disorder [Unknown]
  - Anger [Unknown]
  - Suicidal ideation [Unknown]
  - Therapy cessation [Unknown]
  - Intentional product misuse [Unknown]
